FAERS Safety Report 6040085-2 (Version None)
Quarter: 2009Q1

REPORT INFORMATION
  Report Type: 
  Country: None (occurrence: None)
  Receive Date: 20090116
  Receipt Date: 20080222
  Transmission Date: 20090719
  Serious: No
  Sender: FDA-Public Use
  Company Number: US-BRISTOL-MYERS SQUIBB COMPANY-14006357

PATIENT
  Age: 40 Year
  Sex: Female

DRUGS (6)
  1. ABILIFY [Suspect]
     Indication: BIPOLAR DISORDER
     Dosage: STARTED WITH 5MG X 1 WEEK, THEN DOSE INCREASED TO 10 MG X 1 WEEK AND 15 MG X 1 WEEK
     Route: 048
     Dates: start: 20070921, end: 20071016
  2. ABILIFY [Suspect]
     Indication: ANXIETY
     Dosage: STARTED WITH 5MG X 1 WEEK, THEN DOSE INCREASED TO 10 MG X 1 WEEK AND 15 MG X 1 WEEK
     Route: 048
     Dates: start: 20070921, end: 20071016
  3. STRATTERA [Concomitant]
  4. LAMICTAL [Concomitant]
  5. XANAX [Concomitant]
     Dosage: TABLETS
  6. SEROQUEL [Concomitant]

REACTIONS (5)
  - ANXIETY [None]
  - DYSPNOEA [None]
  - EMOTIONAL DISORDER [None]
  - FEELING ABNORMAL [None]
  - INSOMNIA [None]
